FAERS Safety Report 5893170-X (Version None)
Quarter: 2008Q3

REPORT INFORMATION
  Report Type: 
  Country: None (occurrence: None)
  Receive Date: 20080923
  Receipt Date: 20070907
  Transmission Date: 20090109
  Serious: No
  Sender: FDA-Public Use
  Company Number: US-ASTRAZENECA-2007UW21240

PATIENT
  Sex: Male

DRUGS (6)
  1. SEROQUEL [Suspect]
     Route: 048
  2. SEROQUEL [Interacting]
     Route: 048
  3. SEROQUEL [Interacting]
     Route: 048
  4. SEROQUEL [Interacting]
     Route: 048
  5. SEROQUEL [Interacting]
     Route: 048
  6. ZOLOFT [Interacting]

REACTIONS (2)
  - DRUG INTERACTION [None]
  - FEELING ABNORMAL [None]
